FAERS Safety Report 4641938-X (Version None)
Quarter: 2005Q2

REPORT INFORMATION
  Report Type: 
  Country: None (occurrence: None)
  Receive Date: 20050420
  Receipt Date: 20050406
  Transmission Date: 20051028
  Serious: Yes (Hospitalization, Other)
  Sender: FDA-Public Use
  Company Number: USA050494961

PATIENT
  Sex: Male

DRUGS (2)
  1. HUMULIN N [Suspect]
     Indication: BLOOD GLUCOSE INCREASED
  2. HUMULIN R [Suspect]
     Indication: BLOOD GLUCOSE INCREASED

REACTIONS (5)
  - BLOOD GLUCOSE INCREASED [None]
  - DIALYSIS [None]
  - LEG AMPUTATION [None]
  - PHARMACEUTICAL PRODUCT COMPLAINT [None]
  - RENAL DISORDER [None]
